FAERS Safety Report 25674729 (Version 4)
Quarter: 2025Q4

REPORT INFORMATION
  Report Type: Report from Study
  Country: US (occurrence: US)
  Receive Date: 20250813
  Receipt Date: 20251117
  Transmission Date: 20260118
  Serious: Yes (Hospitalization)
  Sender: ABBVIE
  Company Number: US-ABBVIE-6410039

PATIENT
  Age: 83 Year
  Sex: Female
  Weight: 54 kg

DRUGS (1)
  1. CREON [Suspect]
     Active Substance: PANCRELIPASE AMYLASE\PANCRELIPASE LIPASE\PANCRELIPASE PROTEASE
     Indication: Endocrine pancreatic disorder
     Dosage: FORM STRENGTH: 36000 UNIT, 2 CAPSULES EACH MEAL AND 1 CAPSULE EACH SNACK
     Route: 048
     Dates: start: 20200101

REACTIONS (2)
  - Bone disorder [Unknown]
  - Haematological infection [Not Recovered/Not Resolved]

NARRATIVE: CASE EVENT DATE: 20250101
